FAERS Safety Report 7723788-0 (Version None)
Quarter: 2011Q3

REPORT INFORMATION
  Report Type: 
  Country: None (occurrence: None)
  Receive Date: 20110901
  Receipt Date: 20110818
  Transmission Date: 20111222
  Serious: Yes (Other)
  Sender: FDA-Public Use
  Company Number: PHHY2011BR34618

PATIENT
  Age: 69 Year
  Sex: Female

DRUGS (1)
  1. EXFORGE [Suspect]
     Indication: HYPERTENSION
     Dosage: 160 MG VALS AND 5 MG AMLO BESYLATE

REACTIONS (4)
  - HEAD INJURY [None]
  - ACCIDENT [None]
  - IMMOBILE [None]
  - HAND FRACTURE [None]
